FAERS Safety Report 18183215 (Version 2)
Quarter: 2020Q3

REPORT INFORMATION
  Report Type: Spontaneous
  Country: CN (occurrence: CN)
  Receive Date: 20200821
  Receipt Date: 20200828
  Transmission Date: 20201103
  Serious: Yes (Other)
  Sender: FDA-Public Use
  Company Number: CN-GILEAD-2020-0491463

PATIENT
  Age: 38 Year
  Sex: Female

DRUGS (1)
  1. VEMLIDY [Suspect]
     Active Substance: TENOFOVIR ALAFENAMIDE FUMARATE
     Indication: HEPATITIS B
     Dosage: 1 DOSAGE FORM, QD
     Route: 048

REACTIONS (3)
  - Hepatic cirrhosis [Not Recovered/Not Resolved]
  - Perihepatic discomfort [Not Recovered/Not Resolved]
  - Hepatomegaly [Not Recovered/Not Resolved]
